FAERS Safety Report 5508648-8 (Version None)
Quarter: 2007Q4

REPORT INFORMATION
  Report Type: 
  Country: None (occurrence: None)
  Receive Date: 20071031
  Receipt Date: 20070907
  Transmission Date: 20080405
  Serious: No
  Sender: FDA-Public Use
  Company Number: 2007PV033199

PATIENT
  Age: 66 Year
  Sex: Female

DRUGS (3)
  1. SYMLIN [Suspect]
     Indication: TYPE 2 DIABETES MELLITUS
     Dosage: 90 MCG;BID;SC : 8 MCG;QPM;SC : 90 MCG;TID;SC : 12 MCG;TID;SC
     Route: 058
     Dates: start: 20060910, end: 20060101
  2. SYMLIN [Suspect]
  3. NOVOLOG [Concomitant]

REACTIONS (3)
  - BLOOD GLUCOSE INCREASED [None]
  - FATIGUE [None]
  - STOMACH DISCOMFORT [None]
